FAERS Safety Report 6865298-9 (Version None)
Quarter: 2010Q3

REPORT INFORMATION
  Report Type: 
  Country: None (occurrence: None)
  Receive Date: 20100721
  Receipt Date: 20080417
  Transmission Date: 20110219
  Serious: No
  Sender: FDA-Public Use
  Company Number: US-PFIZER INC-2008035943

PATIENT
  Sex: Male
  Weight: 122.5 kg

DRUGS (3)
  1. CHANTIX [Suspect]
     Indication: SMOKING CESSATION THERAPY
     Route: 048
     Dates: start: 20080402
  2. IBUPROFEN [Concomitant]
  3. TYLENOL PM [Concomitant]

REACTIONS (2)
  - DIZZINESS [None]
  - HEADACHE [None]
